APPROVED DRUG PRODUCT: DIAZEPAM
Active Ingredient: DIAZEPAM
Strength: 5MG
Dosage Form/Route: TABLET;ORAL
Application: A071135 | Product #001 | TE Code: AB
Applicant: DR REDDYS LABORATORIES SA
Approved: Feb 3, 1987 | RLD: No | RS: No | Type: RX